FAERS Safety Report 17582193 (Version 1)
Quarter: 2020Q1

REPORT INFORMATION
  Report Type: Spontaneous
  Country: DE (occurrence: DE)
  Receive Date: 20200325
  Receipt Date: 20200325
  Transmission Date: 20200409
  Serious: Yes (Other)
  Sender: FDA-Public Use
  Company Number: DE-PFIZER INC-2020125258

PATIENT
  Age: 78 Year
  Sex: Female

DRUGS (5)
  1. OSIMERTINIB. [Suspect]
     Active Substance: OSIMERTINIB
     Indication: PRODUCT USED FOR UNKNOWN INDICATION
     Route: 065
     Dates: start: 20190129
  2. DACOMITINIB [Suspect]
     Active Substance: DACOMITINIB
     Route: 065
     Dates: start: 20191227
  3. GILOTRIF [Suspect]
     Active Substance: AFATINIB
     Route: 065
     Dates: start: 20170523, end: 20190128
  4. GILOTRIF [Suspect]
     Active Substance: AFATINIB
     Indication: ADENOCARCINOMA
     Route: 065
     Dates: start: 20170303, end: 20170522
  5. DACOMITINIB [Suspect]
     Active Substance: DACOMITINIB
     Route: 065
     Dates: start: 20191126

REACTIONS (4)
  - Dyspnoea [Unknown]
  - Rash [Unknown]
  - Effusion [Unknown]
  - Diarrhoea [Unknown]
